FAERS Safety Report 18115663 (Version 1)
Quarter: 2020Q3

REPORT INFORMATION
  Report Type: Spontaneous
  Country: US (occurrence: US)
  Receive Date: 20200805
  Receipt Date: 20200805
  Transmission Date: 20201103
  Serious: Yes (Other)
  Sender: FDA-Public Use
  Company Number: US-ASTRAZENECA-2020SE96391

PATIENT
  Sex: Female

DRUGS (2)
  1. ACP?196 [Suspect]
     Active Substance: ACALABRUTINIB
     Route: 048
     Dates: start: 201507, end: 201605
  2. ACP?196 [Suspect]
     Active Substance: ACALABRUTINIB
     Route: 048

REACTIONS (4)
  - Abdominal lymphadenopathy [Recovering/Resolving]
  - Lymphadenopathy [Recovering/Resolving]
  - Lymphoedema [Recovering/Resolving]
  - Ecchymosis [Unknown]

NARRATIVE: CASE EVENT DATE: 201512
